FAERS Safety Report 4986700-3 (Version None)
Quarter: 2006Q2

REPORT INFORMATION
  Report Type: 
  Country: None (occurrence: None)
  Receive Date: 20060428
  Receipt Date: 20050801
  Transmission Date: 20061013
  Serious: Yes (Hospitalization, Disabling, Other)
  Sender: FDA-Public Use
  Company Number: US-MERCK-0508USA00831

PATIENT
  Age: 71 Year
  Sex: Male
  Weight: 90 kg

DRUGS (7)
  1. VIOXX [Suspect]
     Indication: ARTHRITIS
     Route: 048
     Dates: start: 20000101, end: 20040901
  2. GLUCOPHAGE [Concomitant]
     Route: 065
  3. PRAVACHOL [Concomitant]
     Route: 065
  4. TENORMIN [Concomitant]
     Route: 065
  5. PROCARDIA XL [Concomitant]
     Route: 065
  6. MECLIZINE [Concomitant]
     Route: 065
  7. AMBIEN [Concomitant]
     Route: 065

REACTIONS (49)
  - ANGINA UNSTABLE [None]
  - ASTHENIA [None]
  - BENIGN PROSTATIC HYPERPLASIA [None]
  - BURNING SENSATION [None]
  - CARDIAC FAILURE CONGESTIVE [None]
  - CATARACT [None]
  - CEREBROVASCULAR ACCIDENT [None]
  - CHRONIC OBSTRUCTIVE PULMONARY DISEASE [None]
  - CNS VENTRICULITIS [None]
  - CONSTIPATION [None]
  - CONTUSION [None]
  - CONVULSION [None]
  - COUGH [None]
  - DIABETES MELLITUS [None]
  - DIABETIC NEUROPATHY [None]
  - DIZZINESS [None]
  - DUODENITIS [None]
  - DYSPNOEA EXERTIONAL [None]
  - FALL [None]
  - GAIT DISTURBANCE [None]
  - GASTRITIS [None]
  - GASTROENTERITIS [None]
  - GENERALISED OEDEMA [None]
  - GOITRE [None]
  - HYPOAESTHESIA [None]
  - HYPOVOLAEMIA [None]
  - IMPAIRED GASTRIC EMPTYING [None]
  - INJURY [None]
  - INSOMNIA [None]
  - LOSS OF CONSCIOUSNESS [None]
  - MACULAR DEGENERATION [None]
  - MENINGITIS BACTERIAL [None]
  - MENTAL STATUS CHANGES [None]
  - NAUSEA [None]
  - PAPILLARY THYROID CANCER [None]
  - PERIPHERAL VASCULAR DISORDER [None]
  - PNEUMONIA [None]
  - POST POLIO SYNDROME [None]
  - RESPIRATORY DISTRESS [None]
  - RESTRICTIVE CARDIOMYOPATHY [None]
  - RHINITIS ALLERGIC [None]
  - SEPSIS [None]
  - SHUNT INFECTION [None]
  - SHUNT MALFUNCTION [None]
  - SHUNT OCCLUSION [None]
  - SUPRAVENTRICULAR TACHYCARDIA [None]
  - SYNCOPE [None]
  - THROMBOSIS [None]
  - URINARY TRACT INFECTION [None]
